FAERS Safety Report 24690875 (Version 2)
Quarter: 2024Q4

REPORT INFORMATION
  Report Type: Spontaneous
  Country: RU (occurrence: RU)
  Receive Date: 20241203
  Receipt Date: 20241213
  Transmission Date: 20250114
  Serious: Yes (Other)
  Sender: TORRENT PHARMA INC.
  Company Number: RU-TORRENT-00000096

PATIENT
  Age: 18 Year
  Sex: Female

DRUGS (3)
  1. LAMOTRIGINE [Suspect]
     Active Substance: LAMOTRIGINE
     Indication: Stress
     Route: 065
  2. VENLAFAXINE [Suspect]
     Active Substance: VENLAFAXINE HYDROCHLORIDE
     Indication: Stress
     Route: 065
  3. ETIFOXINE [Suspect]
     Active Substance: ETIFOXINE
     Indication: Stress
     Route: 065

REACTIONS (8)
  - Palpitations [Not Recovered/Not Resolved]
  - Dyspnoea exertional [Unknown]
  - Chest pain [Unknown]
  - Asthenia [Unknown]
  - Fear [Unknown]
  - Electrocardiogram QT prolonged [Recovering/Resolving]
  - Arrhythmia [Unknown]
  - Sleep apnoea syndrome [Unknown]
